FAERS Safety Report 23702913 (Version 1)
Quarter: 2024Q2

REPORT INFORMATION
  Report Type: Spontaneous
  Country: CA (occurrence: CA)
  Receive Date: 20240403
  Receipt Date: 20240403
  Transmission Date: 20240716
  Serious: Yes (Hospitalization)
  Sender: FDA-Public Use
  Company Number: CA-TEVA-VS-3178020

PATIENT
  Age: 48 Year
  Sex: Female

DRUGS (3)
  1. ZOLEDRONIC ACID [Suspect]
     Active Substance: ZOLEDRONIC ACID
     Indication: Bone development abnormal
     Route: 065
  2. ZOLEDRONIC ACID [Suspect]
     Active Substance: ZOLEDRONIC ACID
     Indication: Bone development abnormal
     Route: 065
  3. LANREOTIDE ACETATE [Suspect]
     Active Substance: LANREOTIDE ACETATE
     Indication: Neuroendocrine tumour
     Dosage: AUTOGEL PRE-FILLED SYRINGE, DOSAGE FORM: SOLUTION (EXTENDED RELEASE)
     Route: 058

REACTIONS (5)
  - Burning sensation [Recovered/Resolved]
  - Dry throat [Recovered/Resolved]
  - Influenza like illness [Recovering/Resolving]
  - Palpitations [Recovering/Resolving]
  - Tongue dry [Recovering/Resolving]
